FAERS Safety Report 8616110-9 (Version None)
Quarter: 2012Q3

REPORT INFORMATION
  Report Type: 
  Country: None (occurrence: None)
  Receive Date: 20120823
  Receipt Date: 20120816
  Transmission Date: 20120928
  Serious: Yes (Hospitalization)
  Sender: FDA-Public Use
  Company Number: DE-ROCHE-1013032

PATIENT
  Sex: Male
  Weight: 67 kg

DRUGS (6)
  1. AMOCLAV (UNITED STATES) [Concomitant]
     Dates: start: 20110909, end: 20111121
  2. VALCYTE [Suspect]
     Indication: CYTOMEGALOVIRUS INFECTION
     Dosage: LAST DOSE PRIOR TO EVENT 25 SEP 2011
     Route: 048
     Dates: start: 20110913
  3. AMPHOTERICIN B [Concomitant]
     Dosage: 4 APPLICATIONS
     Route: 048
     Dates: start: 20110901
  4. AMOCLAV (UNITED STATES) [Concomitant]
     Dates: start: 20111024, end: 20111123
  5. PANTOPRAZOLE [Concomitant]
     Indication: PROPHYLAXIS AGAINST GASTROINTESTINAL ULCER
     Route: 048
     Dates: start: 20110808
  6. AMLODIPINE [Concomitant]
     Route: 048
     Dates: start: 20110913

REACTIONS (2)
  - RESPIRATORY FAILURE [None]
  - RESPIRATORY TRACT INFECTION [None]
